FAERS Safety Report 9419178 (Version 15)
Quarter: 2015Q3

REPORT INFORMATION
  Report Type: Report from Study
  Country: US (occurrence: US)
  Receive Date: 20130725
  Receipt Date: 20150925
  Transmission Date: 20151125
  Serious: Yes (Other)
  Sender: FDA-Public Use
  Company Number: US-SANOFI-AVENTIS-2013SA073795

PATIENT
  Age: 52 Year
  Sex: Female

DRUGS (4)
  1. AUBAGIO [Suspect]
     Active Substance: TERIFLUNOMIDE
     Indication: MULTIPLE SCLEROSIS
     Route: 048
     Dates: start: 20150207
  2. AUBAGIO [Suspect]
     Active Substance: TERIFLUNOMIDE
     Indication: MULTIPLE SCLEROSIS
     Route: 048
     Dates: start: 20130311, end: 20130415
  3. CYMBALTA [Concomitant]
     Active Substance: DULOXETINE HYDROCHLORIDE
  4. AUBAGIO [Suspect]
     Active Substance: TERIFLUNOMIDE
     Indication: MULTIPLE SCLEROSIS
     Route: 048
     Dates: start: 20140722, end: 20141227

REACTIONS (15)
  - Breath sounds abnormal [Unknown]
  - Hepatic cyst [Not Recovered/Not Resolved]
  - Depression [Unknown]
  - Chest pain [Unknown]
  - Multiple sclerosis relapse [Unknown]
  - Visual impairment [Not Recovered/Not Resolved]
  - Respiratory disorder [Not Recovered/Not Resolved]
  - Memory impairment [Unknown]
  - Gait disturbance [Unknown]
  - Musculoskeletal pain [Unknown]
  - Abdominal pain upper [Not Recovered/Not Resolved]
  - Pain in extremity [Unknown]
  - Back pain [Unknown]
  - Drug dose omission [Unknown]
  - Alopecia [Unknown]

NARRATIVE: CASE EVENT DATE: 20150128
